FAERS Safety Report 11419566 (Version 2)
Quarter: 2015Q4

REPORT INFORMATION
  Report Type: Spontaneous
  Country: JP (occurrence: JP)
  Receive Date: 20150826
  Receipt Date: 20151112
  Transmission Date: 20160304
  Serious: Yes (Other)
  Sender: FDA-Public Use
  Company Number: JP-PFIZER INC-2015276691

PATIENT
  Age: 54 Year
  Sex: Female

DRUGS (1)
  1. XALATAN [Suspect]
     Active Substance: LATANOPROST
     Indication: GLAUCOMA
     Dosage: UNK, ONCE DAILY AT NIGHT
     Route: 047
     Dates: start: 201208

REACTIONS (1)
  - Conjunctival haemorrhage [Recovered/Resolved]
